FAERS Safety Report 16706171 (Version 2)
Quarter: 2019Q3

REPORT INFORMATION
  Report Type: Spontaneous
  Country: US (occurrence: US)
  Receive Date: 20190815
  Receipt Date: 20190903
  Transmission Date: 20191004
  Serious: No
  Sender: FDA-Public Use
  Company Number: US-PFIZER INC-2019290939

PATIENT

DRUGS (2)
  1. CABERGOLINE. [Suspect]
     Active Substance: CABERGOLINE
     Dosage: UNK
     Route: 048
  2. CABERGOLINE. [Suspect]
     Active Substance: CABERGOLINE
     Dosage: UNK
     Route: 048

REACTIONS (4)
  - Alopecia [Unknown]
  - Drug ineffective [Unknown]
  - Product odour abnormal [Unknown]
  - Nausea [Unknown]
